FAERS Safety Report 20085372 (Version 12)
Quarter: 2024Q1

REPORT INFORMATION
  Report Type: Spontaneous
  Country: HU (occurrence: HU)
  Receive Date: 20211118
  Receipt Date: 20240305
  Transmission Date: 20240410
  Serious: Yes (Life-Threatening, Hospitalization, Other)
  Sender: FDA-Public Use
  Company Number: HU-NOVARTISPH-NVSC2021HU254658

PATIENT
  Age: 0 Year
  Sex: Male

DRUGS (110)
  1. ZOLGENSMA [Suspect]
     Active Substance: ONASEMNOGENE ABEPARVOVEC-XIOI
     Indication: Spinal muscular atrophy
     Dosage: UNK
     Route: 065
     Dates: start: 20211102
  2. ZOLGENSMA [Suspect]
     Active Substance: ONASEMNOGENE ABEPARVOVEC-XIOI
     Dosage: 41.3 ML / 8.3X10^14 (3X8.3 ML)
     Route: 042
     Dates: start: 20211103, end: 20211103
  3. ZOLGENSMA [Suspect]
     Active Substance: ONASEMNOGENE ABEPARVOVEC-XIOI
     Dosage: 41.3 ML / 8.3X10^14 (3X8.3 ML)
     Route: 042
     Dates: start: 20211103, end: 20211103
  4. RAMIPRIL [Suspect]
     Active Substance: RAMIPRIL
     Indication: Hypertension
     Dosage: UNK
     Route: 065
  5. FENTANYL [Suspect]
     Active Substance: FENTANYL\FENTANYL CITRATE
     Indication: Product used for unknown indication
     Dosage: UNK
     Route: 042
  6. FAMOTIDINE [Concomitant]
     Active Substance: FAMOTIDINE
     Indication: Product used for unknown indication
     Dosage: 83.7 MG (2X1 IN THE MORNING AND EVENING)
     Route: 065
     Dates: start: 20211102
  7. FAMOTIDINE [Concomitant]
     Active Substance: FAMOTIDINE
     Dosage: UNK (SYRUP)
  8. FAMOTIDINE [Concomitant]
     Active Substance: FAMOTIDINE
     Dosage: UNK (GASTROSTOMY TUBE)
     Route: 065
     Dates: start: 20220104
  9. FAMOTIDINE [Concomitant]
     Active Substance: FAMOTIDINE
     Dosage: 3.6 MG, BID (SUSPENSION)
     Route: 065
  10. FAMOTIDINE [Concomitant]
     Active Substance: FAMOTIDINE
     Dosage: 3 MG, BID (GASTROSTOMY TUBE) (SUSPENSION)
     Route: 065
  11. FAMOTIDINE [Concomitant]
     Active Substance: FAMOTIDINE
     Dosage: UNK (SYRUP)
  12. PREDNISOLONE [Concomitant]
     Active Substance: PREDNISOLONE
     Indication: Product used for unknown indication
     Dosage: 7.5 MG (2X1 IN THE MORNING AND EVENING)
     Route: 054
     Dates: start: 20211102
  13. PREDNISOLONE [Concomitant]
     Active Substance: PREDNISOLONE
     Dosage: 6 MG, QD
     Route: 065
  14. PREDNISOLONE [Concomitant]
     Active Substance: PREDNISOLONE
     Dosage: 2 MG, QD
     Route: 065
  15. PREDNISOLONE [Concomitant]
     Active Substance: PREDNISOLONE
     Dosage: 1 MG/KG
     Route: 054
     Dates: start: 20211102
  16. PREDNISOLONE [Concomitant]
     Active Substance: PREDNISOLONE
     Dosage: 1 MG/KG
     Route: 054
     Dates: start: 20211205, end: 20211213
  17. PREDNISOLONE [Concomitant]
     Active Substance: PREDNISOLONE
     Dosage: 0.85 MG/KG
     Route: 054
     Dates: start: 20211214, end: 20211226
  18. PREDNISOLONE [Concomitant]
     Active Substance: PREDNISOLONE
     Dosage: 0.5 MG/KG
     Route: 054
     Dates: start: 20211227, end: 20220104
  19. PREDNISOLONE [Concomitant]
     Active Substance: PREDNISOLONE
     Dosage: 0.3 MG/KG
     Route: 054
     Dates: start: 20220105
  20. PREDNISOLONE [Concomitant]
     Active Substance: PREDNISOLONE
     Dosage: UNK (INJECTION)
     Route: 042
  21. PREDNISOLONE [Concomitant]
     Active Substance: PREDNISOLONE
     Dosage: UNK
     Route: 065
  22. PREDNISOLONE [Concomitant]
     Active Substance: PREDNISOLONE
     Dosage: UNK (INJECTION)
     Route: 042
  23. PREDNISOLONE [Concomitant]
     Active Substance: PREDNISOLONE
     Dosage: UNK
     Route: 065
  24. SODIUM CHLORIDE [Concomitant]
     Active Substance: SODIUM CHLORIDE
     Indication: Product used for unknown indication
     Dosage: 20 ML
     Route: 065
     Dates: start: 20211103
  25. ISOLYTE [Concomitant]
     Indication: Product used for unknown indication
     Dosage: UNK
     Route: 042
  26. ISOLYTE [Concomitant]
     Dosage: UNK
     Route: 042
  27. ISOLYTE [Concomitant]
     Dosage: UNK
     Route: 042
  28. VANCOMYCIN [Concomitant]
     Active Substance: VANCOMYCIN
     Indication: Product used for unknown indication
     Dosage: UNK
  29. VANCOMYCIN [Concomitant]
     Active Substance: VANCOMYCIN
     Dosage: UNK
  30. MEROPENEM [Concomitant]
     Active Substance: MEROPENEM
     Indication: Product used for unknown indication
     Dosage: UNK
     Route: 042
  31. MEROPENEM [Concomitant]
     Active Substance: MEROPENEM
     Dosage: UNK
     Route: 042
  32. ROCEPHIN [Concomitant]
     Active Substance: CEFTRIAXONE SODIUM
     Indication: Product used for unknown indication
     Dosage: UNK
     Route: 042
  33. ROCEPHIN [Concomitant]
     Active Substance: CEFTRIAXONE SODIUM
     Dosage: UNK
     Route: 042
  34. NYSTATIN [Concomitant]
     Active Substance: NYSTATIN
     Indication: Product used for unknown indication
     Dosage: UNK (POWDER)
  35. NYSTATIN [Concomitant]
     Active Substance: NYSTATIN
     Dosage: UNK (POWDER)
  36. DORMICUM [Concomitant]
     Indication: Product used for unknown indication
     Dosage: UNK
     Route: 042
  37. DORMICUM [Concomitant]
     Dosage: UNK
     Route: 042
  38. DEXMEDETOMIDINE HYDROCHLORIDE [Concomitant]
     Active Substance: DEXMEDETOMIDINE HYDROCHLORIDE
     Indication: Product used for unknown indication
     Dosage: UNK
     Route: 042
  39. DEXMEDETOMIDINE HYDROCHLORIDE [Concomitant]
     Active Substance: DEXMEDETOMIDINE HYDROCHLORIDE
     Dosage: UNK
     Route: 042
  40. CLONIDINE [Concomitant]
     Active Substance: CLONIDINE
     Indication: Product used for unknown indication
     Dosage: UNK
     Route: 042
  41. CLONIDINE [Concomitant]
     Active Substance: CLONIDINE
     Dosage: UNK
     Route: 042
  42. PROPOFOL [Concomitant]
     Active Substance: PROPOFOL
     Indication: Product used for unknown indication
     Dosage: UNK
     Route: 042
  43. PROPOFOL [Concomitant]
     Active Substance: PROPOFOL
     Dosage: UNK
     Route: 042
  44. METHADONE HYDROCHLORIDE [Concomitant]
     Active Substance: METHADONE HYDROCHLORIDE
     Indication: Product used for unknown indication
     Dosage: UNK
  45. METHADONE HYDROCHLORIDE [Concomitant]
     Active Substance: METHADONE HYDROCHLORIDE
     Dosage: UNK
  46. DEXAMETHASONE [Concomitant]
     Active Substance: DEXAMETHASONE
     Indication: Product used for unknown indication
     Dosage: UNK
  47. DEXAMETHASONE [Concomitant]
     Active Substance: DEXAMETHASONE
     Dosage: UNK
  48. KCL [Concomitant]
     Active Substance: POTASSIUM CHLORIDE
     Indication: Product used for unknown indication
     Dosage: 7.45 % (INJECTION)
     Route: 042
  49. KCL [Concomitant]
     Active Substance: POTASSIUM CHLORIDE
     Dosage: UNK (POWDER)
  50. KCL [Concomitant]
     Active Substance: POTASSIUM CHLORIDE
     Dosage: UNK (POWDER)
  51. PENTOXIFYLLINE [Concomitant]
     Active Substance: PENTOXIFYLLINE
     Indication: Product used for unknown indication
     Dosage: UNK
     Route: 042
  52. PENTOXIFYLLINE [Concomitant]
     Active Substance: PENTOXIFYLLINE
     Dosage: UNK
     Route: 042
  53. VITAMIN C [Concomitant]
     Active Substance: ASCORBIC ACID
     Indication: Peritoneal permeability decreased
     Dosage: UNK
     Route: 042
  54. VITAMIN C [Concomitant]
     Active Substance: ASCORBIC ACID
     Route: 042
  55. HUMAN-ALBUMIN [Concomitant]
     Indication: Product used for unknown indication
     Dosage: UNK
     Route: 042
  56. VIGANTOL [Concomitant]
     Indication: Product used for unknown indication
     Dosage: 1 DRP, QD
  57. VIGANTOL [Concomitant]
     Dosage: 3 DRP, QD (VIA GASTROSTOMY TUBE)
     Route: 065
  58. VIGANTOL [Concomitant]
     Dosage: UNK (VIA GASTROSTOMY TUBE) (SOLUTION)
     Route: 065
     Dates: start: 20220104
  59. MALTOFER [Concomitant]
     Indication: Product used for unknown indication
     Dosage: UNK (DROPS)
  60. MALTOFER [Concomitant]
     Dosage: UNK (DROPS)
  61. FOLIC ACID [Concomitant]
     Active Substance: FOLIC ACID
     Indication: Product used for unknown indication
     Dosage: UNK (POWDER)
  62. FOLIC ACID [Concomitant]
     Active Substance: FOLIC ACID
     Dosage: UNK (POWDER)
  63. LACTOBACILLUS REUTERI [Concomitant]
     Active Substance: LACTOBACILLUS REUTERI
     Indication: Product used for unknown indication
     Dosage: UNK
  64. LACTOBACILLUS REUTERI [Concomitant]
     Active Substance: LACTOBACILLUS REUTERI
     Dosage: UNK
  65. ENTEROL [Concomitant]
     Indication: Product used for unknown indication
     Dosage: UNK (POWDER)
  66. ENTEROL [Concomitant]
     Dosage: UNK, BID (1/2 PACK)
     Route: 065
  67. ENTEROL [Concomitant]
     Dosage: UNK (POWDER)
  68. ENTEROL [Concomitant]
     Dosage: UNK, BID (1/2 PACK)
     Route: 065
  69. ENTEROL [Concomitant]
     Dosage: UNK (POWDER)
  70. ENTEROL [Concomitant]
     Dosage: UNK, BID (1/2 PACK)
     Route: 065
  71. NEOGRANORMON [Concomitant]
     Indication: Product used for unknown indication
     Dosage: UNK (LOCALLY TO THE GLUTEAL REGION)
     Route: 065
  72. NEOGRANORMON [Concomitant]
     Dosage: UNK (LOCALLY TO THE GLUTEAL REGION)
     Route: 065
  73. EPHEDRINE HYDROCHLORIDE [Concomitant]
     Active Substance: EPHEDRINE HYDROCHLORIDE
     Indication: Product used for unknown indication
     Dosage: UNK
     Route: 065
  74. EPHEDRINE HYDROCHLORIDE [Concomitant]
     Active Substance: EPHEDRINE HYDROCHLORIDE
     Dosage: UNK
     Route: 065
  75. FLUIMUCIL [Concomitant]
     Active Substance: ACETYLCYSTEINE
     Indication: Product used for unknown indication
     Dosage: UNK (SOLUTION) (IN STEAM)
     Route: 065
  76. FLUIMUCIL [Concomitant]
     Active Substance: ACETYLCYSTEINE
     Dosage: UNK (SOLUTION) (IN STEAM)
     Route: 065
  77. PANTOPRAZOLE [Concomitant]
     Active Substance: PANTOPRAZOLE
     Indication: Product used for unknown indication
     Dosage: UNK (POWDER) (GASTROSTOMY TUBE)
     Route: 065
     Dates: start: 20220104
  78. PANTOPRAZOLE [Concomitant]
     Active Substance: PANTOPRAZOLE
     Dosage: UNK (POWDER)
  79. PANTOPRAZOLE [Concomitant]
     Active Substance: PANTOPRAZOLE
     Dosage: UNK (POWDER)
  80. DENTINOX [Concomitant]
     Indication: Product used for unknown indication
     Dosage: UNK (AS NEEDED)
     Route: 065
  81. DENTINOX [Concomitant]
     Dosage: UNK (AS NEEDED)
     Route: 065
  82. IBUPROFEN [Concomitant]
     Active Substance: IBUPROFEN
     Indication: Product used for unknown indication
     Dosage: UNK
  83. IBUPROFEN [Concomitant]
     Active Substance: IBUPROFEN
     Dosage: UNK
  84. ALGOPYRIN [Concomitant]
     Indication: Product used for unknown indication
     Dosage: UNK
     Route: 042
  85. ALGOPYRIN [Concomitant]
     Dosage: UNK
     Route: 042
  86. ACETAMINOPHEN [Concomitant]
     Active Substance: ACETAMINOPHEN
     Indication: Product used for unknown indication
     Dosage: UNK
     Route: 065
  87. ACETAMINOPHEN [Concomitant]
     Active Substance: ACETAMINOPHEN
     Dosage: UNK
     Route: 065
  88. GLYCOPYRROLATE [Concomitant]
     Active Substance: GLYCOPYRROLATE
     Indication: Product used for unknown indication
     Dosage: UNK, QD (0.001-0.004 MG / KG /) POWDER
     Route: 065
  89. GLYCOPYRROLATE [Concomitant]
     Active Substance: GLYCOPYRROLATE
     Dosage: UNK, QD (0.001-0.004 MG / KG /) POWDER
     Route: 065
  90. GLYCOPYRROLATE [Concomitant]
     Active Substance: GLYCOPYRROLATE
     Dosage: UNK, QD (0.001-0.004 MG / KG /) POWDER
     Route: 065
  91. PANACTIV [Concomitant]
     Indication: Product used for unknown indication
     Dosage: UNK
  92. PANACTIV [Concomitant]
     Dosage: UNK
  93. PANACTIV [Concomitant]
     Dosage: UNK
  94. SOLU-MEDROL [Concomitant]
     Active Substance: METHYLPREDNISOLONE SODIUM SUCCINATE
     Indication: Product used for unknown indication
     Dosage: 0.8 MG/KG
     Route: 042
     Dates: start: 20211107, end: 20211111
  95. SOLU-MEDROL [Concomitant]
     Active Substance: METHYLPREDNISOLONE SODIUM SUCCINATE
     Dosage: 2.8 MG/KG
     Route: 042
     Dates: start: 20211112, end: 20211112
  96. SOLU-MEDROL [Concomitant]
     Active Substance: METHYLPREDNISOLONE SODIUM SUCCINATE
     Dosage: 4 MG/KG
     Route: 042
     Dates: start: 20211113, end: 20211118
  97. SOLU-MEDROL [Concomitant]
     Active Substance: METHYLPREDNISOLONE SODIUM SUCCINATE
     Dosage: 3.4 MG/KG
     Route: 042
     Dates: start: 20211119, end: 20211119
  98. SOLU-MEDROL [Concomitant]
     Active Substance: METHYLPREDNISOLONE SODIUM SUCCINATE
     Dosage: 2.7 MG/KG
     Route: 042
     Dates: start: 20211120, end: 20211120
  99. SOLU-MEDROL [Concomitant]
     Active Substance: METHYLPREDNISOLONE SODIUM SUCCINATE
     Dosage: 2.7 MG/KG
     Route: 042
     Dates: start: 20211121, end: 20211121
  100. SOLU-MEDROL [Concomitant]
     Active Substance: METHYLPREDNISOLONE SODIUM SUCCINATE
     Dosage: 2.4 MG/KG
     Route: 042
     Dates: start: 20211222, end: 20211222
  101. SOLU-MEDROL [Concomitant]
     Active Substance: METHYLPREDNISOLONE SODIUM SUCCINATE
     Dosage: 2.1 MG/KG
     Route: 042
     Dates: start: 20211123, end: 20211124
  102. SOLU-MEDROL [Concomitant]
     Active Substance: METHYLPREDNISOLONE SODIUM SUCCINATE
     Dosage: 1.9 MG/KG
     Route: 042
     Dates: start: 20211125, end: 20211126
  103. SOLU-MEDROL [Concomitant]
     Active Substance: METHYLPREDNISOLONE SODIUM SUCCINATE
     Dosage: 1.6 MG/KG
     Route: 042
     Dates: start: 20211127, end: 20211128
  104. SOLU-MEDROL [Concomitant]
     Active Substance: METHYLPREDNISOLONE SODIUM SUCCINATE
     Dosage: 1.4 MG/KG
     Route: 042
     Dates: start: 20211129, end: 20211202
  105. SOLU-MEDROL [Concomitant]
     Active Substance: METHYLPREDNISOLONE SODIUM SUCCINATE
     Dosage: 1 MG/KG
     Route: 042
     Dates: start: 20211203, end: 20211204
  106. SULFAMETHOXAZOLE\TRIMETHOPRIM [Concomitant]
     Active Substance: SULFAMETHOXAZOLE\TRIMETHOPRIM
     Indication: Product used for unknown indication
     Dosage: UNK
     Route: 065
  107. SULFAMETHOXAZOLE\TRIMETHOPRIM [Concomitant]
     Active Substance: SULFAMETHOXAZOLE\TRIMETHOPRIM
     Route: 065
  108. SULFAMETHOXAZOLE\TRIMETHOPRIM [Concomitant]
     Active Substance: SULFAMETHOXAZOLE\TRIMETHOPRIM
     Route: 065
  109. IMMUNOGLOBULIN [Concomitant]
     Indication: Sepsis
     Dosage: UNK
     Route: 042
  110. IMMUNOGLOBULIN [Concomitant]
     Dosage: UNK
     Route: 042

REACTIONS (41)
  - Oxygen saturation abnormal [Unknown]
  - Pneumonia [Unknown]
  - Pyrexia [Recovered/Resolved]
  - Vomiting [Recovered/Resolved]
  - Cough [Recovered/Resolved]
  - Tachycardia [Unknown]
  - Clostridium difficile colitis [Unknown]
  - Faeces discoloured [Unknown]
  - Diarrhoea [Recovered/Resolved]
  - Sepsis [Unknown]
  - Sepsis [Recovered/Resolved]
  - Thrombotic microangiopathy [Unknown]
  - Protein urine [Unknown]
  - Renal impairment [Unknown]
  - Lethargy [Recovered/Resolved]
  - Red blood cells urine [Unknown]
  - Pyrexia [Recovered/Resolved]
  - Fatigue [Recovered/Resolved]
  - Pallor [Unknown]
  - Oedema [Recovered/Resolved]
  - Anaemia [Unknown]
  - White blood cell count increased [Unknown]
  - Hypercalciuria [Unknown]
  - Proteinuria [Recovered/Resolved]
  - Hypertension [Recovered/Resolved]
  - Respiratory disorder [Not Recovered/Not Resolved]
  - Hepatomegaly [Unknown]
  - Abdominal distension [Recovering/Resolving]
  - General physical health deterioration [Unknown]
  - Somnolence [Unknown]
  - Haptoglobin increased [Unknown]
  - Increased bronchial secretion [Unknown]
  - Salivary hypersecretion [Not Recovered/Not Resolved]
  - Platelet count increased [Unknown]
  - Gait disturbance [Unknown]
  - Muscle tightness [Unknown]
  - Dysphagia [Not Recovered/Not Resolved]
  - Hepatic enzyme increased [Unknown]
  - Muscular weakness [Unknown]
  - Joint contracture [Unknown]
  - Hypertension [Unknown]

NARRATIVE: CASE EVENT DATE: 20211101
